FAERS Safety Report 5625782-2 (Version None)
Quarter: 2008Q1

REPORT INFORMATION
  Report Type: 
  Country: None (occurrence: None)
  Receive Date: 20080213
  Receipt Date: 20080213
  Transmission Date: 20080703
  Serious: Yes (Other)
  Sender: FDA-Public Use
  Company Number: None

PATIENT
  Sex: Male
  Weight: 77.1115 kg

DRUGS (1)
  1. EZETIMIBE (SIMVASTATIN) [Suspect]
     Dosage: DAILY
     Dates: start: 20071205, end: 20080105

REACTIONS (2)
  - FATIGUE [None]
  - MUSCULAR WEAKNESS [None]
